FAERS Safety Report 6859494-4 (Version None)
Quarter: 2010Q3

REPORT INFORMATION
  Report Type: 
  Country: None (occurrence: None)
  Receive Date: 20100719
  Receipt Date: 20080304
  Transmission Date: 20110219
  Serious: No
  Sender: FDA-Public Use
  Company Number: US-PFIZER INC-2008020896

PATIENT
  Sex: Female
  Weight: 63.6 kg

DRUGS (6)
  1. CHANTIX [Suspect]
     Indication: SMOKING CESSATION THERAPY
     Route: 048
     Dates: start: 20080101
  2. CELEXA [Concomitant]
  3. REMERON [Concomitant]
     Indication: SLEEP DISORDER
  4. CLONAZEPAM [Concomitant]
  5. FIORICET [Concomitant]
  6. CALCIUM [Concomitant]

REACTIONS (2)
  - CONSTIPATION [None]
  - NAUSEA [None]
